FAERS Safety Report 10279099 (Version 1)
Quarter: 2014Q3

REPORT INFORMATION
  Report Type: Spontaneous
  Country: US (occurrence: US)
  Receive Date: 20140707
  Receipt Date: 20140707
  Transmission Date: 20150326
  Serious: No
  Sender: FDA-Public Use
  Company Number: US-B.I. PHARMACEUTICALS,INC./RIDGEFIELD-2014-BI-29785BP

PATIENT
  Age: 82 Year
  Sex: Male

DRUGS (5)
  1. VALSARTAN AND HYDROCHLOROTHIAZIDE [Concomitant]
     Active Substance: HYDROCHLOROTHIAZIDE\VALSARTAN
     Dosage: STRENGTH AND DAILY DOSE: 320/25
     Route: 048
  2. PRADAXA [Suspect]
     Active Substance: DABIGATRAN ETEXILATE MESYLATE
     Indication: ATRIAL FIBRILLATION
     Dosage: 150 MG
     Route: 048
     Dates: start: 2012, end: 201303
  3. METOPROLOL [Concomitant]
     Active Substance: METOPROLOL
     Dosage: 100 MG
     Route: 048
  4. DIAZEPAM. [Concomitant]
     Active Substance: DIAZEPAM
     Dosage: 2 MG
     Route: 048
  5. PROPAFENONE. [Concomitant]
     Active Substance: PROPAFENONE
     Dosage: 225 MG
     Route: 048

REACTIONS (2)
  - Atrial fibrillation [Not Recovered/Not Resolved]
  - Epistaxis [Recovered/Resolved]

NARRATIVE: CASE EVENT DATE: 201303
